FAERS Safety Report 10181954 (Version 1)
Quarter: 2014Q2

REPORT INFORMATION
  Report Type: Spontaneous
  Country: US (occurrence: US)
  Receive Date: 20140519
  Receipt Date: 20140519
  Transmission Date: 20141212
  Serious: Yes (Hospitalization)
  Sender: FDA-Public Use
  Company Number: US-GILEAD-2014-0102444

PATIENT
  Age: 62 Year
  Sex: Male

DRUGS (12)
  1. SOVALDI [Suspect]
     Indication: HEPATITIS C
     Dosage: 400 MG, QD
     Route: 048
  2. SIMEPREVIR [Concomitant]
  3. RIBAVIRIN [Concomitant]
  4. LASIX                              /00032601/ [Concomitant]
  5. XIFAXA [Concomitant]
  6. LACTULOSE [Concomitant]
  7. NORVASC [Concomitant]
  8. LOPRESSOR [Concomitant]
  9. NEORAL [Concomitant]
  10. UROXATRAL [Concomitant]
  11. XANAX [Concomitant]
  12. CYMBALTA [Concomitant]

REACTIONS (3)
  - Blood potassium increased [Unknown]
  - Nausea [Unknown]
  - Fatigue [Unknown]
